FAERS Safety Report 10512414 (Version 1)
Quarter: 2014Q4

REPORT INFORMATION
  Report Type: Report from Study
  Country: BR (occurrence: BR)
  Receive Date: 20141010
  Receipt Date: 20141010
  Transmission Date: 20150528
  Serious: Yes (Other)
  Sender: FDA-Public Use
  Company Number: PHHY2014BR132571

PATIENT
  Age: 65 Year
  Sex: Male
  Weight: 94 kg

DRUGS (6)
  1. ONGLYZA [Concomitant]
     Active Substance: SAXAGLIPTIN HYDROCHLORIDE
     Indication: DIABETES MELLITUS
     Dosage: 1 DF (5 MG), PER DAY
     Route: 065
  2. DIOVAN [Suspect]
     Active Substance: VALSARTAN
     Indication: HYPERTENSION
     Dosage: 1 DF, A DAY
     Route: 065
     Dates: start: 2005
  3. GLIFAGE [Concomitant]
     Active Substance: METFORMIN HYDROCHLORIDE
     Indication: DIABETES MELLITUS
     Dosage: 2 DF (750 MG), PER DAY
     Route: 065
  4. STILNOX [Concomitant]
     Active Substance: ZOLPIDEM TARTRATE
     Indication: SLEEP DISORDER
     Dosage: 1 DF (10 MG), QD (BEFORE SLEEPING)
     Route: 065
  5. VELIJA [Concomitant]
     Active Substance: DULOXETINE HYDROCHLORIDE
     Indication: DEPRESSION
     Dosage: 1 DF (60 MG), PER DAY
     Route: 065
  6. RIVOTRIL [Concomitant]
     Active Substance: CLONAZEPAM
     Indication: SLEEP DISORDER
     Dosage: 6 DRP, QD (AT NIGHT)
     Route: 065

REACTIONS (5)
  - Dysstasia [Unknown]
  - Hepatic cancer metastatic [Unknown]
  - Fall [Recovering/Resolving]
  - Hepatic neoplasm [Unknown]
  - Hypokinesia [Unknown]

NARRATIVE: CASE EVENT DATE: 200805
